FAERS Safety Report 16878770 (Version 3)
Quarter: 2020Q1

REPORT INFORMATION
  Report Type: Spontaneous
  Country: JP (occurrence: JP)
  Receive Date: 20191002
  Receipt Date: 20200115
  Transmission Date: 20200409
  Serious: Yes (Hospitalization)
  Sender: FDA-Public Use
  Company Number: JP-ELI_LILLY_AND_COMPANY-JP201909012955

PATIENT
  Age: 76 Year
  Sex: Male
  Weight: 50 kg

DRUGS (2)
  1. CYRAMZA [Suspect]
     Active Substance: RAMUCIRUMAB
     Indication: LUNG SQUAMOUS CELL CARCINOMA STAGE IV
     Dosage: 570 MG, CYCLICAL
     Route: 041
     Dates: start: 20190723, end: 20190917
  2. DOCETAXEL. [Concomitant]
     Active Substance: DOCETAXEL
     Indication: LUNG SQUAMOUS CELL CARCINOMA STAGE IV
     Dosage: 90 MG, CYCLICAL
     Route: 041
     Dates: start: 20190723, end: 20190917

REACTIONS (2)
  - Haemoptysis [Not Recovered/Not Resolved]
  - Pneumonia [Recovering/Resolving]

NARRATIVE: CASE EVENT DATE: 20190922
